FAERS Safety Report 8215131-8 (Version None)
Quarter: 2012Q1

REPORT INFORMATION
  Report Type: 
  Country: None (occurrence: None)
  Receive Date: 20120316
  Receipt Date: 20120312
  Transmission Date: 20120608
  Serious: Yes (Death)
  Sender: FDA-Public Use
  Company Number: JP-PFIZER INC-2012068340

PATIENT
  Age: 60 Year
  Sex: Female

DRUGS (23)
  1. ARGATROBAN [Suspect]
     Dosage: 25MG/HOUR X 2H (1 IN 1 D)
     Route: 051
     Dates: start: 20111014, end: 20111018
  2. CYCLOPHOSPHAMIDE [Concomitant]
     Dosage: 500MG
     Route: 042
     Dates: start: 20111016, end: 20111016
  3. KYTRIL [Concomitant]
     Indication: PROPHYLAXIS
     Dosage: 3MG
     Route: 042
     Dates: start: 20111016, end: 20111016
  4. MEROPENEM [Concomitant]
     Route: 051
  5. DEXMEDETOMIDINE HYDROCHLORIDE [Concomitant]
     Indication: SEDATION
     Dosage: UNK
     Route: 042
     Dates: start: 20111019, end: 20111028
  6. MARZULENE [Concomitant]
     Route: 048
  7. COTRIM [Concomitant]
     Route: 048
  8. NAFAMOSTAT [Concomitant]
     Dosage: 960MG
     Route: 051
     Dates: start: 20111019, end: 20111107
  9. CALCIUM CARBONATE [Concomitant]
     Indication: PROPHYLAXIS
     Route: 042
  10. LANSOPRAZOLE [Concomitant]
     Indication: PROPHYLAXIS
     Dosage: 60MG
     Route: 042
     Dates: start: 20111018, end: 20111106
  11. VANCOMYCIN [Concomitant]
     Route: 051
  12. DAI-KENCHU-TO [Concomitant]
     Route: 048
  13. NOREPINEPHRINE BITARTRATE [Concomitant]
     Route: 051
  14. ENTECAVIR [Concomitant]
     Route: 048
  15. ENTERONON [Concomitant]
     Route: 048
  16. DIPRIVAN [Concomitant]
     Indication: SEDATION
     Dosage: UNK
     Route: 042
     Dates: start: 20111019, end: 20111026
  17. ARGATROBAN [Suspect]
     Indication: ANTICOAGULANT THERAPY
     Dosage: 10MG
     Route: 040
     Dates: start: 20111010, end: 20111018
  18. ZOSYN [Concomitant]
     Route: 051
  19. MINOCYCLINE HCL [Concomitant]
     Route: 051
  20. HEPARIN SODIUM [Concomitant]
     Route: 051
  21. MAXIPIME [Concomitant]
     Route: 051
  22. SOLU-MEDROL [Concomitant]
     Dosage: 500MG
     Route: 042
     Dates: start: 20111016, end: 20111018
  23. POLYMYXIN B SULFATE [Concomitant]
     Route: 048

REACTIONS (1)
  - PULMONARY ALVEOLAR HAEMORRHAGE [None]
